FAERS Safety Report 8437250-3 (Version None)
Quarter: 2012Q2

REPORT INFORMATION
  Report Type: 
  Country: None (occurrence: None)
  Receive Date: 20120614
  Receipt Date: 20120229
  Transmission Date: 20120825
  Serious: No
  Sender: FDA-Public Use
  Company Number: US-AMGEN-USASP2011038867

PATIENT
  Age: 57 Year
  Sex: Female

DRUGS (15)
  1. VIACTIV                            /00751501/ [Concomitant]
     Dosage: UNK
  2. REGLAN [Concomitant]
     Dosage: UNK
  3. LEVOXYL [Concomitant]
     Dosage: UNK
  4. VITAMIN C                          /00008001/ [Concomitant]
     Dosage: UNK
  5. LEVOXYL [Concomitant]
  6. CAPTOPRIL [Concomitant]
     Dosage: UNK
  7. LOTEMAX [Concomitant]
     Dosage: UNK UNK, QD
  8. NOVOLOG [Concomitant]
     Dosage: UNK
  9. IBUPROFEN (ADVIL) [Concomitant]
     Dosage: UNK
  10. COSAMIN DS [Concomitant]
     Dosage: UNK
  11. PROLIA [Suspect]
     Indication: OSTEOPOROSIS POSTMENOPAUSAL
     Dosage: 60 MG, Q6MO
     Dates: start: 20110301
  12. LOTEMAX [Concomitant]
  13. LOVAZA [Concomitant]
     Dosage: UNK
  14. CAPTOPRIL [Concomitant]
  15. TYLENOL (CAPLET) [Concomitant]
     Dosage: UNK

REACTIONS (3)
  - PARAESTHESIA [None]
  - GAIT DISTURBANCE [None]
  - ARTHRALGIA [None]
